FAERS Safety Report 6719169-9 (Version None)
Quarter: 2010Q2

REPORT INFORMATION
  Report Type: 
  Country: None (occurrence: None)
  Receive Date: 20100510
  Receipt Date: 20100510
  Transmission Date: 20101027
  Serious: Yes (Other)
  Sender: FDA-Public Use
  Company Number: None

PATIENT
  Sex: Male
  Weight: 109.1 kg

DRUGS (1)
  1. ROLAIDS [Suspect]
     Indication: DYSPEPSIA
     Dosage: 2 TABLETS MOST NIGHTS ORAL, MANY YEARS
     Route: 048

REACTIONS (3)
  - DIARRHOEA [None]
  - RETCHING [None]
  - VOMITING [None]
